FAERS Safety Report 6790604-3 (Version None)
Quarter: 2010Q2

REPORT INFORMATION
  Report Type: 
  Country: None (occurrence: None)
  Receive Date: 20100624
  Receipt Date: 20080514
  Transmission Date: 20101027
  Serious: No
  Sender: FDA-Public Use
  Company Number: US-PFIZER INC-2008042101

PATIENT
  Age: 58 Year
  Sex: Female

DRUGS (3)
  1. NIFEDIPINE [Suspect]
     Indication: HYPERTENSION
     Route: 048
     Dates: start: 20080426
  2. LEVAQUIN [Suspect]
     Indication: EAR INFECTION
     Route: 048
     Dates: start: 20080401, end: 20080101
  3. XANAX [Concomitant]
     Dosage: PRN

REACTIONS (3)
  - DECREASED APPETITE [None]
  - PALPITATIONS [None]
  - WEIGHT DECREASED [None]
